FAERS Safety Report 24964904 (Version 1)
Quarter: 2025Q1

REPORT INFORMATION
  Report Type: Spontaneous
  Country: GB (occurrence: GB)
  Receive Date: 20250213
  Receipt Date: 20250213
  Transmission Date: 20250408
  Serious: Yes (Other)
  Sender: MERZ
  Company Number: GB-MERZ PHARMACEUTICALS, LLC-ACO_176532_2025

PATIENT

DRUGS (1)
  1. DALFAMPRIDINE [Suspect]
     Active Substance: DALFAMPRIDINE
     Indication: Multiple sclerosis
     Dosage: 10.0 MILLIGRAM, BID
     Route: 048

REACTIONS (3)
  - Diabetes mellitus [Unknown]
  - Feeding disorder [Unknown]
  - Unevaluable event [Unknown]
